FAERS Safety Report 4813769-9 (Version None)
Quarter: 2005Q4

REPORT INFORMATION
  Report Type: 
  Country: None (occurrence: None)
  Receive Date: 20051028
  Receipt Date: 20050928
  Transmission Date: 20060501
  Serious: Yes (Death, Hospitalization)
  Sender: FDA-Public Use
  Company Number: US-AMGEN-US152218

PATIENT
  Sex: Male
  Weight: 85 kg

DRUGS (11)
  1. SENSIPAR [Suspect]
     Indication: HYPERPARATHYROIDISM SECONDARY
     Route: 048
     Dates: start: 20050316
  2. CALCIUM ACETATE [Concomitant]
     Route: 048
     Dates: start: 20050831
  3. ZEMPLAR [Concomitant]
     Route: 042
     Dates: start: 20050727
  4. TUMS [Concomitant]
     Route: 048
     Dates: start: 20050427
  5. LEVOCARNITINE [Concomitant]
     Route: 042
     Dates: start: 20050105
  6. VENOFER [Concomitant]
     Route: 040
     Dates: start: 20041222
  7. ASPIRIN [Concomitant]
     Route: 048
     Dates: start: 20031112
  8. SORBITOL [Concomitant]
     Route: 048
     Dates: start: 20030811
  9. INSULIN [Concomitant]
     Route: 058
     Dates: start: 20030722
  10. INSULIN HUMULIN L [Concomitant]
     Route: 058
     Dates: start: 20021218
  11. EPOGEN [Concomitant]
     Indication: DIALYSIS

REACTIONS (4)
  - BLOOD CREATININE INCREASED [None]
  - CORONARY ARTERY DISEASE [None]
  - MYOCARDIAL INFARCTION [None]
  - SINUS TACHYCARDIA [None]
